FAERS Safety Report 19440864 (Version 4)
Quarter: 2022Q2

REPORT INFORMATION
  Report Type: Spontaneous
  Country: IT (occurrence: IT)
  Receive Date: 20210621
  Receipt Date: 20220405
  Transmission Date: 20220721
  Serious: Yes (Death, Other)
  Sender: FDA-Public Use
  Company Number: IT-ORGANON-O2106ITA001544

PATIENT
  Age: 41 Year
  Sex: Male
  Weight: 72 kg

DRUGS (11)
  1. REMERON [Suspect]
     Active Substance: MIRTAZAPINE
     Dosage: UNK
     Route: 048
  2. BUTYLSCOPOLAMINE BROMIDE [Suspect]
     Active Substance: BUTYLSCOPOLAMINE BROMIDE
     Dosage: UNK
  3. SCOPOLAMINE HYDROBROMIDE [Suspect]
     Active Substance: SCOPOLAMINE HYDROBROMIDE
     Dosage: UNK
  4. QUETIAPINE [Suspect]
     Active Substance: QUETIAPINE
     Dosage: UNK
  5. TRIAZOLAM [Suspect]
     Active Substance: TRIAZOLAM
     Dosage: UNK
  6. LORAZEPAM [Suspect]
     Active Substance: LORAZEPAM
     Dosage: UNK
  7. DIAZEPAM [Suspect]
     Active Substance: DIAZEPAM
     Dosage: UNK
  8. NORDAZEPAM [Suspect]
     Active Substance: NORDAZEPAM
     Dosage: UNK
  9. TEMAZEPAM [Suspect]
     Active Substance: TEMAZEPAM
     Dosage: UNK
  10. OXAZEPAM [Suspect]
     Active Substance: OXAZEPAM
     Dosage: UNK
  11. VALPROIC ACID [Suspect]
     Active Substance: VALPROIC ACID
     Dosage: UNK

REACTIONS (2)
  - Toxicity to various agents [Fatal]
  - Drug abuse [Fatal]
